FAERS Safety Report 6806092-4 (Version None)
Quarter: 2010Q2

REPORT INFORMATION
  Report Type: 
  Country: None (occurrence: None)
  Receive Date: 20100629
  Receipt Date: 20100617
  Transmission Date: 20101027
  Serious: Yes (Hospitalization, Other)
  Sender: FDA-Public Use
  Company Number: AR-GENENTECH-303299

PATIENT
  Age: 15 Year
  Sex: Female

DRUGS (1)
  1. MABTHERA [Suspect]
     Indication: SYSTEMIC LUPUS ERYTHEMATOSUS
     Dosage: UNK
     Route: 065
     Dates: start: 20090601

REACTIONS (3)
  - B-LYMPHOCYTE COUNT DECREASED [None]
  - CEREBRAL TOXOPLASMOSIS [None]
  - HYPOGAMMAGLOBULINAEMIA [None]
